FAERS Safety Report 9556599 (Version 2)
Quarter: 2013Q4

REPORT INFORMATION
  Report Type: Spontaneous
  Country: US (occurrence: US)
  Receive Date: 20130926
  Receipt Date: 20131018
  Transmission Date: 20140711
  Serious: No
  Sender: FDA-Public Use
  Company Number: US-PFIZER INC-2013274327

PATIENT
  Sex: Female

DRUGS (2)
  1. PREMARIN [Suspect]
     Dosage: 0.9 MG, UNK
  2. LYRICA [Concomitant]
     Dosage: UNK

REACTIONS (1)
  - Hot flush [Not Recovered/Not Resolved]
